APPROVED DRUG PRODUCT: ALDACTAZIDE
Active Ingredient: HYDROCHLOROTHIAZIDE; SPIRONOLACTONE
Strength: 50MG;50MG
Dosage Form/Route: TABLET;ORAL
Application: N012616 | Product #005
Applicant: PFIZER INC
Approved: Dec 30, 1982 | RLD: Yes | RS: No | Type: DISCN